FAERS Safety Report 16569207 (Version 1)
Quarter: 2019Q3

REPORT INFORMATION
  Report Type: Report from Study
  Country: None (occurrence: US)
  Receive Date: 20190714
  Receipt Date: 20190714
  Transmission Date: 20191004
  Serious: Yes (Hospitalization)
  Sender: FDA-Public Use
  Company Number: US-ABBVIE-19K-163-2848023-00

PATIENT
  Age: 60 Year
  Sex: Male

DRUGS (1)
  1. HUMIRA [Suspect]
     Active Substance: ADALIMUMAB
     Indication: ANKYLOSING SPONDYLITIS
     Route: 058
     Dates: end: 201906

REACTIONS (8)
  - Nasal ulcer [Not Recovered/Not Resolved]
  - Pneumonia bacterial [Recovering/Resolving]
  - Oral herpes [Recovering/Resolving]
  - Infection [Not Recovered/Not Resolved]
  - Rhinovirus infection [Recovering/Resolving]
  - Abscess [Recovering/Resolving]
  - Cellulitis [Recovering/Resolving]
  - Fatigue [Not Recovered/Not Resolved]

NARRATIVE: CASE EVENT DATE: 2019
